FAERS Safety Report 14013951 (Version 2)
Quarter: 2017Q4

REPORT INFORMATION
  Report Type: Spontaneous
  Country: RO (occurrence: RO)
  Receive Date: 20170926
  Receipt Date: 20171009
  Transmission Date: 20180321
  Serious: Yes (Other)
  Sender: FDA-Public Use
  Company Number: PHHY2017RO141310

PATIENT

DRUGS (1)
  1. ARZERRA [Suspect]
     Active Substance: OFATUMUMAB
     Indication: CHRONIC LYMPHOCYTIC LEUKAEMIA
     Dosage: UNK
     Route: 065
     Dates: start: 201110, end: 201203

REACTIONS (2)
  - Neutropenia [Recovering/Resolving]
  - Aspergillus infection [Recovering/Resolving]
